FAERS Safety Report 9119176 (Version 1)
Quarter: 2013Q1

REPORT INFORMATION
  Report Type: Spontaneous
  Country: US (occurrence: US)
  Receive Date: 20130226
  Receipt Date: 20130226
  Transmission Date: 20140127
  Serious: No
  Sender: FDA-Public Use
  Company Number: US-PFIZER INC-2013066033

PATIENT
  Age: 76 Year
  Sex: Female
  Weight: 70.3 kg

DRUGS (1)
  1. ADVIL [Suspect]
     Indication: SCIATICA
     Dosage: UNK, 2X/DAY
     Route: 048
     Dates: end: 20130217

REACTIONS (1)
  - Increased tendency to bruise [Unknown]
